FAERS Safety Report 4322776-4 (Version None)
Quarter: 2004Q1

REPORT INFORMATION
  Report Type: 
  Country: None (occurrence: None)
  Receive Date: 20040324
  Receipt Date: 20040130
  Transmission Date: 20041129
  Serious: Yes (Death)
  Sender: FDA-Public Use
  Company Number: FR-ROCHE-357616

PATIENT
  Age: 45 Year
  Sex: Male
  Weight: 98 kg

DRUGS (8)
  1. PEGASYS [Suspect]
     Indication: HEPATITIS C
     Dosage: START DATE ALSO REPORTED AS AUG 2003.
     Route: 058
     Dates: start: 20030512, end: 20040128
  2. REBETOL [Suspect]
     Indication: HEPATITIS C
     Route: 048
     Dates: start: 20030815, end: 20040128
  3. COPEGUS [Concomitant]
     Indication: DRUG USE FOR UNKNOWN INDICATION
     Route: 065
  4. ANTIDEPRESSANT [Concomitant]
     Indication: DRUG USE FOR UNKNOWN INDICATION
     Route: 065
  5. STILNOX [Concomitant]
     Route: 048
     Dates: start: 20030512, end: 20040128
  6. AVLOCARDYL [Concomitant]
     Indication: PORTAL HYPERTENSION
     Route: 048
     Dates: start: 20030512, end: 20040128
  7. SEROPRAM [Concomitant]
     Route: 048
     Dates: start: 20030512, end: 20040128
  8. REBETOL [Concomitant]
     Route: 048
     Dates: start: 20030512, end: 20040128

REACTIONS (3)
  - GASTRIC PERFORATION [None]
  - PANCREATIC CARCINOMA [None]
  - SUDDEN DEATH [None]
